FAERS Safety Report 7797839-1 (Version None)
Quarter: 2011Q4

REPORT INFORMATION
  Report Type: 
  Country: None (occurrence: None)
  Receive Date: 20111005
  Receipt Date: 20110928
  Transmission Date: 20120403
  Serious: Yes (Other)
  Sender: FDA-Public Use
  Company Number: US-ABBOTT-11P-163-0858281-00

PATIENT
  Age: 43 Year
  Sex: Female

DRUGS (5)
  1. HUMIRA [Suspect]
     Dosage: 1 IN 1 WKS LAST RX WRITTEN ON 27JUL2010
  2. SYNTHROID [Concomitant]
     Indication: HYPOTHYROIDISM
     Route: 048
  3. HUMIRA [Suspect]
     Dosage: 1 IN 2 WKS, 29-AUG-2006, TONSILLECTOMY
     Route: 058
     Dates: start: 20061001
  4. HUMIRA [Suspect]
     Indication: RHEUMATOID ARTHRITIS
     Route: 058
     Dates: start: 20060826, end: 20060826
  5. NAPROXEN [Concomitant]
     Indication: PAIN
     Dosage: 2 TIMES DAILY AS NEEDED
     Route: 048

REACTIONS (9)
  - HYPERAESTHESIA [None]
  - TONSILLAR HAEMORRHAGE [None]
  - URTICARIA [None]
  - MENISCUS LESION [None]
  - PRURITUS GENERALISED [None]
  - MEMORY IMPAIRMENT [None]
  - SYNOVIAL CYST [None]
  - NASOPHARYNGITIS [None]
  - TONSILLECTOMY [None]
